FAERS Safety Report 7445667-9 (Version None)
Quarter: 2011Q2

REPORT INFORMATION
  Report Type: 
  Country: None (occurrence: None)
  Receive Date: 20110420
  Receipt Date: 20110315
  Transmission Date: 20111010
  Serious: No
  Sender: FDA-Public Use
  Company Number: 2011-00108

PATIENT
  Age: 65 Year
  Sex: Female
  Weight: 58.0604 kg

DRUGS (3)
  1. SYNTHROID [Concomitant]
  2. ZICAM COLD REMEDY ORAL MIST [Suspect]
     Dosage: ON GOING
     Dates: start: 20110314
  3. LISINOPRIL [Concomitant]

REACTIONS (1)
  - AGEUSIA [None]
